FAERS Safety Report 10385553 (Version 3)
Quarter: 2014Q4

REPORT INFORMATION
  Report Type: Spontaneous
  Country: GB (occurrence: None)
  Receive Date: 20140812
  Receipt Date: 20141007
  Transmission Date: 20150528
  Serious: Yes (Other)
  Sender: FDA-Public Use
  Company Number: 2474960

PATIENT
  Sex: Male

DRUGS (2)
  1. CICLOSPORIN [Suspect]
     Active Substance: CYCLOSPORINE
     Indication: IMMUNOSUPPRESSION
  2. METHOTREXATE [Suspect]
     Active Substance: METHOTREXATE
     Indication: IMMUNOSUPPRESSION

REACTIONS (8)
  - No therapeutic response [None]
  - Activities of daily living impaired [None]
  - Impaired work ability [None]
  - Pruritus [None]
  - Sleep disorder [None]
  - Suicidal ideation [None]
  - Urticaria [None]
  - Depression [None]
